FAERS Safety Report 21859640 (Version 4)
Quarter: 2023Q2

REPORT INFORMATION
  Report Type: Spontaneous
  Country: US (occurrence: US)
  Receive Date: 20230113
  Receipt Date: 20230407
  Transmission Date: 20230722
  Serious: Yes (Other)
  Sender: FDA-Public Use
  Company Number: US-PFIZER INC-PV202200130427

PATIENT
  Age: 1 Year
  Sex: Male

DRUGS (3)
  1. NIVESTYM [Suspect]
     Active Substance: FILGRASTIM-AAFI
     Dosage: 1 DF, CYCLIC (1 INJECTION PER 14 DAYS)
  2. NIVESTYM [Suspect]
     Active Substance: FILGRASTIM-AAFI
     Dosage: 1 DF, DAILY, (PT. WAS DOING 1 INJECTION PER DAY)
  3. NEUPOGEN [Concomitant]
     Active Substance: FILGRASTIM
     Indication: Neutrophil count abnormal
     Dosage: UNK, 1X/DAY

REACTIONS (4)
  - Neuroblastoma [Unknown]
  - Peritoneal carcinoma metastatic [Unknown]
  - Metastases to bone marrow [Unknown]
  - Off label use [Unknown]
